APPROVED DRUG PRODUCT: POTASSIUM CHLORIDE
Active Ingredient: POTASSIUM CHLORIDE
Strength: 40MEQ
Dosage Form/Route: FOR SOLUTION;ORAL
Application: N208019 | Product #003
Applicant: GENUS LIFESCIENCES INC
Approved: Aug 25, 2023 | RLD: Yes | RS: Yes | Type: RX